FAERS Safety Report 6698607-4 (Version None)
Quarter: 2010Q2

REPORT INFORMATION
  Report Type: 
  Country: None (occurrence: None)
  Receive Date: 20100427
  Receipt Date: 20100419
  Transmission Date: 20101027
  Serious: Yes (Hospitalization)
  Sender: FDA-Public Use
  Company Number: FR-PFIZER INC-2010048775

PATIENT
  Age: 25 Year
  Sex: Female

DRUGS (11)
  1. CYTARABINE [Suspect]
     Indication: NON-HODGKIN'S LYMPHOMA
     Dosage: 40 MG, 1X/DAY
     Route: 037
     Dates: start: 20100317, end: 20100317
  2. METHOTREXATE [Suspect]
     Indication: NON-HODGKIN'S LYMPHOMA
     Dosage: 15 MG, 1X/DAY
     Route: 037
     Dates: start: 20100317, end: 20100317
  3. DOXORUBICIN HCL [Suspect]
     Indication: NON-HODGKIN'S LYMPHOMA
     Dosage: 50 MG/M2, 1X/DAY
     Route: 042
     Dates: start: 20100317, end: 20100317
  4. DEPO-MEDROL [Suspect]
     Indication: NON-HODGKIN'S LYMPHOMA
     Dosage: 15 MG, 1X/DAY
     Route: 037
     Dates: start: 20100317, end: 20100317
  5. MABTHERA [Suspect]
     Indication: NON-HODGKIN'S LYMPHOMA
     Dosage: 750 MG, 1X/DAY
     Route: 042
     Dates: start: 20100317, end: 20100317
  6. ENDOXAN [Suspect]
     Indication: NON-HODGKIN'S LYMPHOMA
     Dosage: 1.5 MG, 1X/DAY
     Route: 042
     Dates: start: 20100317, end: 20100317
  7. VINCRISTINE [Suspect]
     Indication: NON-HODGKIN'S LYMPHOMA
     Dosage: 2 MG, 1X/DAY
     Route: 042
     Dates: start: 20100317, end: 20100317
  8. CORTANCYL [Suspect]
     Indication: NON-HODGKIN'S LYMPHOMA
     Dosage: UNK
     Route: 048
     Dates: start: 20100201, end: 20100301
  9. NEXIUM [Suspect]
     Dosage: UNK
     Route: 048
     Dates: start: 20100201, end: 20100327
  10. PRIMPERAN [Suspect]
     Dosage: UNK
     Route: 048
     Dates: start: 20100201, end: 20100327
  11. ALLOPURINOL [Suspect]
     Dosage: UNK
     Route: 048
     Dates: start: 20100201, end: 20100327

REACTIONS (2)
  - CEREBRAL VENOUS THROMBOSIS [None]
  - HEADACHE [None]
